FAERS Safety Report 9335395 (Version 2)
Quarter: 2013Q2

REPORT INFORMATION
  Report Type: Spontaneous
  Country: DE (occurrence: CH)
  Receive Date: 20130605
  Receipt Date: 20130618
  Transmission Date: 20140414
  Serious: No
  Sender: FDA-Public Use
  Company Number: CH-FRI-1000045706

PATIENT
  Age: 78 Year
  Sex: Male
  Weight: 68 kg

DRUGS (5)
  1. ROFLUMILAST [Suspect]
     Indication: CHRONIC OBSTRUCTIVE PULMONARY DISEASE
     Dosage: 1 TABLET Q 2ND DAY
     Dates: start: 20120911, end: 20120918
  2. ROFLUMILAST [Suspect]
     Indication: CHRONIC OBSTRUCTIVE PULMONARY DISEASE
     Dates: start: 20130108
  3. SERETIDE [Concomitant]
  4. SPIRIVA [Concomitant]
     Dosage: 1 DF
  5. ONBREZ [Concomitant]
     Dosage: 1 DF

REACTIONS (2)
  - Confusional state [Unknown]
  - Medication error [Unknown]
